FAERS Safety Report 8516936-6 (Version None)
Quarter: 2012Q3

REPORT INFORMATION
  Report Type: 
  Country: None (occurrence: None)
  Receive Date: 20120718
  Receipt Date: 20120711
  Transmission Date: 20120928
  Serious: Yes (Other)
  Sender: FDA-Public Use
  Company Number: CA-ELI_LILLY_AND_COMPANY-CA201207003954

PATIENT
  Age: 63 Year
  Sex: Female

DRUGS (12)
  1. CYMBALTA [Concomitant]
  2. BISOPROLOL FUMARATE [Concomitant]
  3. FORTEO [Suspect]
     Indication: OSTEOPOROSIS
     Dosage: 20 UG, QD
     Route: 058
     Dates: start: 20120403
  4. FOLIC ACID [Concomitant]
  5. PANTOPRAZOLE SODIUM [Concomitant]
  6. SPIRIVA [Concomitant]
  7. METHOTREXATE [Concomitant]
  8. ORENCIA [Concomitant]
  9. PREDNISONE [Concomitant]
  10. LIPITOR [Concomitant]
     Dosage: UNK
  11. VITAMIN D [Concomitant]
  12. SYNTHROID [Concomitant]

REACTIONS (1)
  - HIP ARTHROPLASTY [None]
